FAERS Safety Report 14979582 (Version 1)
Quarter: 2018Q2

REPORT INFORMATION
  Report Type: Spontaneous
  Country: US (occurrence: US)
  Receive Date: 20180606
  Receipt Date: 20180606
  Transmission Date: 20180711
  Serious: No
  Sender: FDA-Public Use
  Company Number: US-MYLANLABS-2018M1033783

PATIENT
  Sex: Female
  Weight: 88 kg

DRUGS (3)
  1. LIDOCAINE PATCH [Suspect]
     Active Substance: LIDOCAINE
     Indication: BACK PAIN
     Dosage: 5 %, UNK
     Route: 003
     Dates: start: 20180508, end: 20180517
  2. SOMA [Concomitant]
     Active Substance: CARISOPRODOL
     Indication: PRODUCT USED FOR UNKNOWN INDICATION
     Dosage: UNK
  3. TYLENOL WITH CODEINE [Concomitant]
     Active Substance: ACETAMINOPHEN\CODEINE PHOSPHATE
     Indication: PRODUCT USED FOR UNKNOWN INDICATION
     Dosage: UNK

REACTIONS (4)
  - Off label use [Not Recovered/Not Resolved]
  - Product quality issue [Not Recovered/Not Resolved]
  - No adverse event [Unknown]
  - Product adhesion issue [Not Recovered/Not Resolved]
